FAERS Safety Report 4911873-8 (Version None)
Quarter: 2006Q1

REPORT INFORMATION
  Report Type: 
  Country: None (occurrence: None)
  Receive Date: 20060215
  Receipt Date: 20060203
  Transmission Date: 20060701
  Serious: Yes (Death)
  Sender: FDA-Public Use
  Company Number: CH-JNJFOC-20060201314

PATIENT
  Age: 69 Year
  Sex: Male

DRUGS (7)
  1. HALDOL [Suspect]
     Indication: DRUG USE FOR UNKNOWN INDICATION
     Route: 040
  2. NOZINAN [Suspect]
     Indication: DRUG USE FOR UNKNOWN INDICATION
     Route: 040
  3. ASPIRIN [Concomitant]
     Dosage: LONG TERM USE
     Route: 048
  4. MARCOUMAR [Concomitant]
     Dosage: TAKEN AS NEEDED
     Route: 048
  5. ZOCOR [Concomitant]
     Route: 048
  6. ACETAMINOPHEN [Concomitant]
     Route: 048
  7. ACTRAPID [Concomitant]
     Dosage: TAKEN AS NEEDED
     Route: 058

REACTIONS (3)
  - CARDIAC ARREST [None]
  - TORSADE DE POINTES [None]
  - VENTRICULAR FIBRILLATION [None]
